FAERS Safety Report 9078411 (Version 1)
Quarter: 2013Q1

REPORT INFORMATION
  Report Type: Spontaneous
  Country: JP (occurrence: JP)
  Receive Date: 20130130
  Receipt Date: 20130130
  Transmission Date: 20140127
  Serious: Yes (Other)
  Sender: FDA-Public Use
  Company Number: JP-TEVA-382429ISR

PATIENT
  Age: 9 Decade
  Sex: Female

DRUGS (9)
  1. CEFTRIAXONE [Suspect]
     Indication: PNEUMONIA
     Dosage: 2 GRAM DAILY;
     Route: 042
  2. PREDNISOLONE [Concomitant]
     Route: 065
  3. LIMAPROST [Concomitant]
     Route: 065
  4. LANSOPRAZOLE [Concomitant]
     Route: 065
  5. ALFACALCIDOL [Concomitant]
     Route: 065
  6. FUROSEMIDE [Concomitant]
     Route: 065
  7. SPIRONOLACTONE [Concomitant]
     Route: 065
  8. CELECOXIB [Concomitant]
     Route: 065
  9. METHOTREXATE [Concomitant]
     Route: 065

REACTIONS (1)
  - Pancytopenia [Recovering/Resolving]
